FAERS Safety Report 12289153 (Version 1)
Quarter: 2016Q2

REPORT INFORMATION
  Report Type: Spontaneous
  Country: US (occurrence: US)
  Receive Date: 20160421
  Receipt Date: 20160421
  Transmission Date: 20160815
  Serious: Yes (Death, Other)
  Sender: FDA-Public Use
  Company Number: US-ZYDUS-010746

PATIENT
  Age: 47 Year
  Sex: Female
  Weight: 118 kg

DRUGS (2)
  1. GABAPENTIN. [Suspect]
     Active Substance: GABAPENTIN
     Indication: PRODUCT USED FOR UNKNOWN INDICATION
     Dosage: 600 MG
     Route: 048
  2. ACETAMINOPHEN\HYDROCODONE BITARTRATE [Concomitant]
     Active Substance: ACETAMINOPHEN\HYDROCODONE BITARTRATE
     Indication: PRODUCT USED FOR UNKNOWN INDICATION
     Route: 065

REACTIONS (8)
  - Wheezing [Not Recovered/Not Resolved]
  - Cough [Not Recovered/Not Resolved]
  - Toxicity to various agents [Fatal]
  - Respiratory depression [Fatal]
  - Accidental overdose [Fatal]
  - Dyspnoea [Not Recovered/Not Resolved]
  - Pneumonia [Fatal]
  - Somnolence [Not Recovered/Not Resolved]
